FAERS Safety Report 25886517 (Version 1)
Quarter: 2025Q4

REPORT INFORMATION
  Report Type: Spontaneous
  Country: US (occurrence: US)
  Receive Date: 20251006
  Receipt Date: 20251006
  Transmission Date: 20260118
  Serious: No
  Sender: STEMLINE THERAPEUTICS
  Company Number: US-STEMLINE THERAPEUTICS B.V.-2025-STML-US002997

PATIENT

DRUGS (2)
  1. ORSERDU [Suspect]
     Active Substance: ELACESTRANT
     Indication: Breast cancer metastatic
     Dosage: UNK (FULL DOSE)
     Route: 065
  2. ORSERDU [Suspect]
     Active Substance: ELACESTRANT
     Dosage: UNK (REDUCED DOSE)
     Route: 065

REACTIONS (1)
  - Hepatic enzyme increased [Unknown]
